FAERS Safety Report 11840051 (Version 1)
Quarter: 2015Q4

REPORT INFORMATION
  Report Type: Spontaneous
  Country: DE (occurrence: DE)
  Receive Date: 20151216
  Receipt Date: 20151216
  Transmission Date: 20160305
  Serious: Yes (Other)
  Sender: FDA-Public Use
  Company Number: DE-SUN PHARMACEUTICAL INDUSTRIES LTD-2015RR-107788

PATIENT

DRUGS (1)
  1. ACICLOVIR [Suspect]
     Active Substance: ACYCLOVIR
     Indication: HERPES VIRUS INFECTION
     Dosage: UNK
     Route: 048
     Dates: start: 201207

REACTIONS (2)
  - Carcinoid tumour of the caecum [Recovered/Resolved with Sequelae]
  - Metastases to liver [Unknown]

NARRATIVE: CASE EVENT DATE: 20141110
